FAERS Safety Report 7118672-X (Version None)
Quarter: 2010Q4

REPORT INFORMATION
  Report Type: 
  Country: None (occurrence: None)
  Receive Date: 20101123
  Receipt Date: 20101112
  Transmission Date: 20110411
  Serious: Yes (Other)
  Sender: FDA-Public Use
  Company Number: JP-JNJFOC-20101104896

PATIENT
  Sex: Male

DRUGS (3)
  1. ITRIZOLE [Suspect]
     Indication: DIZZINESS
     Route: 048
  2. ITRIZOLE [Suspect]
     Indication: HEADACHE
     Route: 048
  3. AMPHOTERICIN B [Concomitant]
     Route: 065

REACTIONS (11)
  - BONE PAIN [None]
  - EAR PAIN [None]
  - LUNG DISORDER [None]
  - OROPHARYNGEAL PAIN [None]
  - PAIN [None]
  - PAIN IN EXTREMITY [None]
  - RASH [None]
  - SEBORRHOEIC DERMATITIS [None]
  - THROAT IRRITATION [None]
  - TOOTH EROSION [None]
  - TOOTHACHE [None]
